FAERS Safety Report 15804524 (Version 4)
Quarter: 2019Q3

REPORT INFORMATION
  Report Type: Report from Study
  Country: US (occurrence: US)
  Receive Date: 20190109
  Receipt Date: 20190715
  Transmission Date: 20191004
  Serious: Yes (Other)
  Sender: FDA-Public Use
  Company Number: US-PFIZER INC-2018521564

PATIENT
  Age: 51 Year
  Sex: Male
  Weight: 96.4 kg

DRUGS (7)
  1. CYTARABINE. [Suspect]
     Active Substance: CYTARABINE
     Indication: ACUTE MYELOID LEUKAEMIA
     Dosage: 220 MG, DAILY BY CONTINUOUS INFUSION
     Route: 041
     Dates: start: 20181121, end: 20181127
  2. BLINDED PLACEBO [Suspect]
     Active Substance: INVESTIGATIONAL PRODUCT
     Indication: ACUTE MYELOID LEUKAEMIA
     Dosage: UNK UNK, 1X/DAY (ONCE DAILY CONTINUOUS)
     Route: 048
     Dates: start: 20181121, end: 20190102
  3. BLINDED GLASDEGIB [Suspect]
     Active Substance: GLASDEGIB
     Indication: ACUTE MYELOID LEUKAEMIA
     Dosage: UNK UNK, 1X/DAY (ONCE DAILY CONTINUOUS)
     Route: 048
     Dates: start: 20181121, end: 20190102
  4. ATORVASTATIN [Concomitant]
     Active Substance: ATORVASTATIN
     Indication: HYPERLIPIDAEMIA
     Dosage: 40 MG, 1X/DAY (QD)
     Route: 048
     Dates: start: 201011
  5. CYTARABINE. [Suspect]
     Active Substance: CYTARABINE
     Dosage: 5.610 G, CYCLIC (OVER 3 HOURS TWICE DAILY ON DAYS 1, 3, 5)
     Route: 042
     Dates: start: 20181229, end: 20190102
  6. DAUNORUBICIN [Suspect]
     Active Substance: DAUNORUBICIN
     Indication: ACUTE MYELOID LEUKAEMIA
     Dosage: 130 MG, DAILY BY CONTINUOUS INFUSION
     Route: 041
     Dates: start: 20181121, end: 20181123
  7. BLINDED PF-04449913 [Suspect]
     Active Substance: GLASDEGIB
     Indication: ACUTE MYELOID LEUKAEMIA
     Dosage: UNK UNK, 1X/DAY (ONCE DAILY CONTINUOUS)
     Route: 048
     Dates: start: 20181121, end: 20190102

REACTIONS (1)
  - Stenosis [Recovered/Resolved]

NARRATIVE: CASE EVENT DATE: 20181213
